FAERS Safety Report 5506905-2 (Version None)
Quarter: 2007Q4

REPORT INFORMATION
  Report Type: 
  Country: None (occurrence: None)
  Receive Date: 20071105
  Receipt Date: 20071024
  Transmission Date: 20080405
  Serious: Yes (Death)
  Sender: FDA-Public Use
  Company Number: US-GENENTECH-250211

PATIENT
  Age: 72 Year
  Sex: Male
  Weight: 99.5 kg

DRUGS (2)
  1. BEVACIZUMAB [Suspect]
     Indication: GLIOBLASTOMA
     Dosage: 10 MG/KG, DAYS 1+15
     Route: 042
     Dates: start: 20070808
  2. IRINOTECAN HCL [Concomitant]
     Indication: GLIOBLASTOMA
     Dosage: 125 MG/M2, DAYS 1+15
     Route: 042
     Dates: start: 20070808

REACTIONS (1)
  - DEATH [None]
